FAERS Safety Report 11765654 (Version 1)
Quarter: 2015Q4

REPORT INFORMATION
  Report Type: Report from Study
  Country: AU (occurrence: AU)
  Receive Date: 20151121
  Receipt Date: 20151121
  Transmission Date: 20160304
  Serious: Yes (Hospitalization)
  Sender: FDA-Public Use
  Company Number: AU-ABBVIE-13P-008-1145512-00

PATIENT
  Age: 47 Year
  Sex: Female

DRUGS (5)
  1. PREDNISOLONE. [Concomitant]
     Active Substance: PREDNISOLONE
     Indication: INFLAMMATORY BOWEL DISEASE
     Route: 048
  2. CLAVULANIC ACID [Suspect]
     Active Substance: CLAVULANIC ACID
     Indication: PRODUCT USED FOR UNKNOWN INDICATION
     Route: 065
  3. HUMIRA [Suspect]
     Active Substance: ADALIMUMAB
     Indication: CROHN^S DISEASE
     Dosage: ONE DOSE ONLY
     Route: 058
     Dates: start: 20130816, end: 20130903
  4. HUMIRA [Suspect]
     Active Substance: ADALIMUMAB
     Route: 058
  5. AZATHIOPRINE. [Concomitant]
     Active Substance: AZATHIOPRINE
     Indication: INFLAMMATORY BOWEL DISEASE
     Dosage: MORE THAN 6 MONTHS
     Route: 048

REACTIONS (20)
  - Mean cell haemoglobin increased [Unknown]
  - Nephropathy [Unknown]
  - Hepatic function abnormal [Unknown]
  - Adverse drug reaction [Not Recovered/Not Resolved]
  - Mean cell volume increased [Unknown]
  - Blood lactate dehydrogenase increased [Unknown]
  - Fluid overload [Unknown]
  - Blood bilirubin increased [Unknown]
  - Gastrointestinal disorder [Unknown]
  - Platelet count increased [Unknown]
  - Blood albumin decreased [Unknown]
  - Cholestasis [Recovered/Resolved]
  - Lethargy [Recovered/Resolved]
  - Skin reaction [Recovered/Resolved]
  - Platelet count increased [Unknown]
  - Red blood cell count decreased [Unknown]
  - Malnutrition [Unknown]
  - Hepatocellular injury [Unknown]
  - Chronic disease [Unknown]
  - Jaundice [Recovered/Resolved]

NARRATIVE: CASE EVENT DATE: 20130823
